FAERS Safety Report 9632496 (Version 2)
Quarter: 2014Q3

REPORT INFORMATION
  Report Type: Spontaneous
  Country: US (occurrence: US)
  Receive Date: 20131018
  Receipt Date: 20140711
  Transmission Date: 20150326
  Serious: Yes (Hospitalization, Other)
  Sender: FDA-Public Use
  Company Number: US-009507513-1310USA004899

PATIENT
  Sex: Female
  Weight: 88.44 kg

DRUGS (1)
  1. NUVARING [Suspect]
     Active Substance: ETHINYL ESTRADIOL\ETONOGESTREL
     Dosage: UNK
     Route: 067
     Dates: start: 2010, end: 2012

REACTIONS (13)
  - Hepatic steatosis [Unknown]
  - Pulmonary embolism [Unknown]
  - Abortion missed [Unknown]
  - Alopecia [Unknown]
  - Exposure during pregnancy [Recovered/Resolved]
  - Hyperglycaemia [Unknown]
  - Hepatic steatosis [Unknown]
  - Deep vein thrombosis [Unknown]
  - Diabetes mellitus [Unknown]
  - Hepatomegaly [Unknown]
  - Vena cava filter insertion [Unknown]
  - Drug hypersensitivity [Unknown]
  - Adverse drug reaction [Unknown]

NARRATIVE: CASE EVENT DATE: 2011
